FAERS Safety Report 5562849-1 (Version None)
Quarter: 2007Q4

REPORT INFORMATION
  Report Type: 
  Country: None (occurrence: None)
  Receive Date: 20071212
  Receipt Date: 20071202
  Transmission Date: 20080405
  Serious: Yes (Other)
  Sender: FDA-Public Use
  Company Number: 2007SP024244

PATIENT
  Sex: Male

DRUGS (2)
  1. NOXAFIL [Suspect]
     Indication: FUNGAL INFECTION
     Dosage: PO
     Route: 048
  2. DILANTIN [Concomitant]

REACTIONS (1)
  - CONVULSION [None]
